FAERS Safety Report 6526227-0 (Version None)
Quarter: 2009Q4

REPORT INFORMATION
  Report Type: 
  Country: None (occurrence: None)
  Receive Date: 20091228
  Receipt Date: 20091208
  Transmission Date: 20100525
  Serious: Yes (Life-Threatening, Hospitalization, Disabling)
  Sender: FDA-Public Use
  Company Number: 20090586

PATIENT
  Age: 31 Year
  Sex: Female

DRUGS (4)
  1. LIDOCAINE HCL INJECTION, USP (0625-25) 10 MG/ML [Suspect]
     Indication: TACHYCARDIA
     Dosage: 100 MG INJECTION NOS
     Route: 042
  2. ATROPINE [Concomitant]
  3. CALCIUM CHLORIDE [Concomitant]
  4. EPINEPHRINE [Concomitant]

REACTIONS (2)
  - CARDIAC ARREST [None]
  - CONDUCTION DISORDER [None]
